FAERS Safety Report 13355032 (Version 2)
Quarter: 2017Q1

REPORT INFORMATION
  Report Type: Spontaneous
  Country: TR (occurrence: TR)
  Receive Date: 20170321
  Receipt Date: 20170322
  Transmission Date: 20170429
  Serious: Yes (Death)
  Sender: FDA-Public Use
  Company Number: TR-TAKEDA-2017TUS005745

PATIENT
  Age: 65 Year
  Sex: Male

DRUGS (1)
  1. COLCHICINE. [Suspect]
     Active Substance: COLCHICINE
     Indication: VASCULITIS
     Dosage: 0.5 MG, BID
     Route: 048

REACTIONS (2)
  - Off label use [Unknown]
  - Toxicity to various agents [Fatal]
